FAERS Safety Report 4689625-6 (Version None)
Quarter: 2005Q2

REPORT INFORMATION
  Report Type: 
  Country: None (occurrence: None)
  Receive Date: 20050608
  Receipt Date: 20050131
  Transmission Date: 20051028
  Serious: No
  Sender: FDA-Public Use
  Company Number: 2005-BP-01490BP

PATIENT
  Age: 69 Year
  Sex: Female

DRUGS (3)
  1. SPIRIVA [Suspect]
     Indication: CHRONIC OBSTRUCTIVE PULMONARY DISEASE
     Dosage: 18 MCG (18 MCG) , IH
     Route: 055
     Dates: start: 20041230
  2. FORADIL [Concomitant]
  3. ESTROGEN (ESTROGEN NOS) [Concomitant]

REACTIONS (5)
  - BREAST PAIN [None]
  - DYSPNOEA EXACERBATED [None]
  - JOINT SWELLING [None]
  - MENSTRUATION IRREGULAR [None]
  - OEDEMA PERIPHERAL [None]
